FAERS Safety Report 21628332 (Version 2)
Quarter: 2023Q1

REPORT INFORMATION
  Report Type: Report from Study
  Country: US (occurrence: US)
  Receive Date: 20221122
  Receipt Date: 20230111
  Transmission Date: 20230417
  Serious: No
  Sender: FDA-Public Use
  Company Number: US-ABBVIE-22K-163-4249177-00

PATIENT
  Age: 50 Year
  Sex: Male

DRUGS (3)
  1. HUMIRA [Suspect]
     Active Substance: ADALIMUMAB
     Indication: Ankylosing spondylitis
     Route: 058
     Dates: start: 20220101
  2. HUMIRA [Suspect]
     Active Substance: ADALIMUMAB
     Route: 058
     Dates: start: 20220101
  3. HUMIRA [Suspect]
     Active Substance: ADALIMUMAB
     Route: 058
     Dates: start: 20220101

REACTIONS (12)
  - Loss of personal independence in daily activities [Unknown]
  - Mobility decreased [Recovered/Resolved]
  - Joint range of motion decreased [Recovered/Resolved]
  - Off label use [Unknown]
  - Mobility decreased [Unknown]
  - Dysstasia [Recovered/Resolved]
  - Loss of personal independence in daily activities [Recovered/Resolved]
  - Dysstasia [Unknown]
  - Musculoskeletal stiffness [Unknown]
  - Joint range of motion decreased [Unknown]
  - Arthralgia [Unknown]
  - Nasopharyngitis [Recovered/Resolved]

NARRATIVE: CASE EVENT DATE: 20220101
